FAERS Safety Report 12848099 (Version 1)
Quarter: 2016Q4

REPORT INFORMATION
  Report Type: Spontaneous
  Country: US (occurrence: US)
  Receive Date: 20161014
  Receipt Date: 20161014
  Transmission Date: 20170207
  Serious: No
  Sender: FDA-Public Use
  Company Number: US-JNJFOC-20160819437

PATIENT
  Age: 52 Year
  Sex: Female
  Weight: 61.24 kg

DRUGS (2)
  1. MOTRIN [Suspect]
     Active Substance: IBUPROFEN
     Indication: PAIN
     Route: 048
  2. MOTRIN [Suspect]
     Active Substance: IBUPROFEN
     Route: 048

REACTIONS (2)
  - Overdose [Unknown]
  - Therapeutic response unexpected [Unknown]
